FAERS Safety Report 19378050 (Version 1)
Quarter: 2021Q2

REPORT INFORMATION
  Report Type: Other
  Country: JP (occurrence: JP)
  Receive Date: 20210604
  Receipt Date: 20210604
  Transmission Date: 20210717
  Serious: Yes (Hospitalization, Other)
  Sender: FDA-Public Use
  Company Number: JP-ROCHE-1814042

PATIENT
  Age: 18 Year
  Sex: Male
  Weight: 50 kg

DRUGS (40)
  1. POLARAMINE [Concomitant]
     Active Substance: DEXCHLORPHENIRAMINE MALEATE
     Route: 048
     Dates: start: 20160329, end: 20160329
  2. POLYCARBOPHIL [Concomitant]
     Active Substance: POLYCARBOPHIL
     Indication: IRRITABLE BOWEL SYNDROME
     Route: 048
     Dates: end: 20151217
  3. METHYLPREDNISOLONE SODIUM SUCCINATE. [Concomitant]
     Active Substance: METHYLPREDNISOLONE SODIUM SUCCINATE
  4. SOL?MELCORT [Concomitant]
     Active Substance: METHYLPREDNISOLONE SODIUM SUCCINATE
     Route: 042
     Dates: start: 20161101, end: 20161101
  5. ACETAMINOPHEN. [Concomitant]
     Active Substance: ACETAMINOPHEN
  6. RITUXIMAB. [Suspect]
     Active Substance: RITUXIMAB
     Indication: NEPHROTIC SYNDROME
     Route: 041
     Dates: start: 20161101, end: 20161101
  7. RITUXIMAB. [Suspect]
     Active Substance: RITUXIMAB
     Route: 041
     Dates: start: 20151216, end: 20151216
  8. CALONAL [Concomitant]
     Active Substance: ACETAMINOPHEN
     Route: 048
     Dates: start: 20150914, end: 20150914
  9. ALLEGRA [Concomitant]
     Active Substance: FEXOFENADINE HYDROCHLORIDE
     Indication: RHINITIS ALLERGIC
     Route: 048
  10. D?CHLORPHENIRAMINE MALEATE [Concomitant]
     Active Substance: DEXCHLORPHENIRAMINE MALEATE
  11. RITUXIMAB. [Suspect]
     Active Substance: RITUXIMAB
     Route: 041
     Dates: start: 20160329, end: 20160329
  12. POLARAMINE [Concomitant]
     Active Substance: DEXCHLORPHENIRAMINE MALEATE
     Indication: PREMEDICATION
     Dosage: NEXT DOSES ON 05/JUL/2016 AND 01/NOV/2016
     Route: 048
     Dates: start: 20160329, end: 20160329
  13. CALONAL [Concomitant]
     Active Substance: ACETAMINOPHEN
     Route: 048
     Dates: start: 20150612, end: 20150612
  14. FEXOFENADINE HYDROCHLORIDE. [Concomitant]
     Active Substance: FEXOFENADINE HYDROCHLORIDE
  15. RITUXIMAB. [Suspect]
     Active Substance: RITUXIMAB
     Indication: ILL-DEFINED DISORDER
     Dosage: NEXT DOSES WAS RECEIVED ON 12/JUN/2015, 29/MAR/2016 AND 05/JUL/2016
     Route: 041
     Dates: start: 20150312, end: 20150312
  16. SOL?MELCORT [Concomitant]
     Active Substance: METHYLPREDNISOLONE SODIUM SUCCINATE
     Indication: PREMEDICATION
     Dosage: 40MG/24HRS?NEXT DOSES ON 12/JUN/2015, 14/SEP/2015 AND 16/DEC/2015
     Route: 042
     Dates: start: 20150312, end: 20150312
  17. POLARAMINE [Concomitant]
     Active Substance: DEXCHLORPHENIRAMINE MALEATE
     Route: 048
     Dates: start: 20160705, end: 20160705
  18. POLARAMINE [Concomitant]
     Active Substance: DEXCHLORPHENIRAMINE MALEATE
     Route: 048
     Dates: start: 20161101, end: 20161101
  19. CALONAL [Concomitant]
     Active Substance: ACETAMINOPHEN
     Route: 048
     Dates: start: 20151216, end: 20151216
  20. CALONAL [Concomitant]
     Active Substance: ACETAMINOPHEN
     Route: 048
     Dates: start: 20160705, end: 20160705
  21. CALONAL [Concomitant]
     Active Substance: ACETAMINOPHEN
     Route: 048
     Dates: start: 20161101, end: 20161101
  22. METENOLONE ACETATE [Concomitant]
     Active Substance: METHENOLONE ACETATE
  23. RITUXIMAB. [Suspect]
     Active Substance: RITUXIMAB
     Indication: GLOMERULONEPHRITIS MEMBRANOUS
     Dosage: SINGLE AT THE INITIAL INFUSION RATE OF 25 MG/H AND THE MAXIMUM RATE OF 100 MG/H
     Route: 041
     Dates: start: 20141208, end: 20141208
  24. RITUXIMAB. [Suspect]
     Active Substance: RITUXIMAB
     Indication: NEPHROTIC SYNDROME
     Dosage: DAILY DOSE? 100 MG/24 HRS?NEXT DOSE WAS RECEIVED ON 16/SEP/2015
     Route: 041
     Dates: start: 20150914, end: 20150914
  25. RITUXIMAB. [Suspect]
     Active Substance: RITUXIMAB
     Route: 041
     Dates: start: 20150612, end: 20150612
  26. SOL?MELCORT [Concomitant]
     Active Substance: METHYLPREDNISOLONE SODIUM SUCCINATE
     Dates: start: 20151216, end: 20151216
  27. POLARAMINE [Concomitant]
     Active Substance: DEXCHLORPHENIRAMINE MALEATE
     Dosage: 2MG/24HRS?NEXT DOSES ON 12/JUN/2015, 14/SEP/2015 AND 16/DEC/2015
     Route: 048
     Dates: start: 20150312, end: 20150312
  28. POLARAMINE [Concomitant]
     Active Substance: DEXCHLORPHENIRAMINE MALEATE
     Route: 048
     Dates: start: 20151216, end: 20151216
  29. CALONAL [Concomitant]
     Active Substance: ACETAMINOPHEN
     Dosage: 400MG/24HRS?NEXT DOSES ON 12/JUN/2015, 14/SEP/2015 AND 16/DEC/2015
     Route: 048
     Dates: start: 20150312, end: 20150312
  30. CELLCEPT [Concomitant]
     Active Substance: MYCOPHENOLATE MOFETIL\MYCOPHENOLATE MOFETIL HYDROCHLORIDE
     Indication: NEPHROTIC SYNDROME
     Route: 048
     Dates: start: 200907
  31. TRANCOLON [Concomitant]
     Active Substance: MEPENZOLATE BROMIDE
     Indication: IRRITABLE BOWEL SYNDROME
     Route: 048
     Dates: end: 20151217
  32. ALFACALCIDOL [Concomitant]
     Active Substance: ALFACALCIDOL
  33. MEPENZOLATE BROMIDE [Concomitant]
     Active Substance: MEPENZOLATE BROMIDE
  34. SOL?MELCORT [Concomitant]
     Active Substance: METHYLPREDNISOLONE SODIUM SUCCINATE
     Route: 042
     Dates: start: 20150914, end: 20150914
  35. POLYCARBOPHIL CALCIUM [Concomitant]
     Active Substance: CALCIUM POLYCARBOPHIL
  36. RITUXIMAB. [Suspect]
     Active Substance: RITUXIMAB
     Route: 041
     Dates: start: 20160705, end: 20160705
  37. SOL?MELCORT [Concomitant]
     Active Substance: METHYLPREDNISOLONE SODIUM SUCCINATE
     Dosage: NEXT DOSES ON 05/JUL/2016 AND 01/NOV/2016
     Route: 042
     Dates: start: 20160329, end: 20160329
  38. CALONAL [Concomitant]
     Active Substance: ACETAMINOPHEN
     Indication: PREMEDICATION
     Dosage: NEXT DOSES ON 05/JUL/2016 AND 01/NOV/2016
     Route: 048
     Dates: start: 20160329, end: 20160329
  39. BAKTAR [Concomitant]
     Active Substance: SULFAMETHOXAZOLE\TRIMETHOPRIM
     Indication: INFECTION PROPHYLAXIS
     Dosage: 2 TABLETS
     Route: 048
  40. ONEALFA [Concomitant]
     Active Substance: ALFACALCIDOL
     Indication: OSTEOPOROSIS
     Route: 048

REACTIONS (5)
  - Gingivitis [Recovered/Resolved]
  - Hypogammaglobulinaemia [Not Recovered/Not Resolved]
  - Agranulocytosis [Recovered/Resolved]
  - Off label use [Unknown]
  - Agranulocytosis [Recovered/Resolved]

NARRATIVE: CASE EVENT DATE: 20151201
